FAERS Safety Report 6640617-7 (Version None)
Quarter: 2010Q1

REPORT INFORMATION
  Report Type: 
  Country: None (occurrence: None)
  Receive Date: 20100318
  Receipt Date: 20100311
  Transmission Date: 20100710
  Serious: Yes (Other)
  Sender: FDA-Public Use
  Company Number: US-BAYER-201016466NA

PATIENT
  Age: 33 Year
  Sex: Female
  Weight: 85 kg

DRUGS (1)
  1. MIRENA [Suspect]
     Indication: INTRA-UTERINE CONTRACEPTIVE DEVICE
     Dosage: FREQUENCY: CONTINUOUS
     Route: 015
     Dates: start: 20090301, end: 20100308

REACTIONS (6)
  - AGGRESSION [None]
  - MANIA [None]
  - MIGRAINE [None]
  - MOOD SWINGS [None]
  - PSYCHOTIC DISORDER [None]
  - WEIGHT INCREASED [None]
